FAERS Safety Report 5523432-7 (Version None)
Quarter: 2007Q4

REPORT INFORMATION
  Report Type: 
  Country: None (occurrence: None)
  Receive Date: 20071121
  Receipt Date: 20071112
  Transmission Date: 20080405
  Serious: Yes (Hospitalization, Other)
  Sender: FDA-Public Use
  Company Number: US-AMGEN-STX252231

PATIENT
  Sex: Female

DRUGS (1)
  1. ENBREL [Suspect]
     Indication: RHEUMATOID ARTHRITIS
     Route: 058
     Dates: start: 20020101

REACTIONS (10)
  - CONFUSIONAL STATE [None]
  - FOOD POISONING [None]
  - HEART VALVE INCOMPETENCE [None]
  - INJECTION SITE PAIN [None]
  - JOINT INJURY [None]
  - MYOCARDIAL INFARCTION [None]
  - PNEUMONIA [None]
  - PULMONARY HAEMORRHAGE [None]
  - WOUND INFECTION [None]
  - WRIST FRACTURE [None]
